FAERS Safety Report 25366549 (Version 2)
Quarter: 2025Q2

REPORT INFORMATION
  Report Type: Spontaneous
  Country: JP (occurrence: JP)
  Receive Date: 20250528
  Receipt Date: 20250610
  Transmission Date: 20250717
  Serious: Yes (Other)
  Sender: ASTELLAS
  Company Number: JP-ASTELLAS-2025-AER-025469

PATIENT
  Age: 72 Year
  Sex: Male

DRUGS (6)
  1. PADCEV [Suspect]
     Active Substance: ENFORTUMAB VEDOTIN-EJFV
     Indication: Bladder cancer
     Route: 042
     Dates: start: 20250423, end: 20250430
  2. VANCOMYCIN [Concomitant]
     Active Substance: VANCOMYCIN
     Indication: Injection site infection
     Route: 042
     Dates: start: 20250505
  3. VANCOMYCIN [Concomitant]
     Active Substance: VANCOMYCIN
     Indication: Infusion site extravasation
  4. GENTAMICIN SULFATE [Concomitant]
     Active Substance: GENTAMICIN SULFATE
     Indication: Injection site injury
     Route: 065
  5. SOLBASE [Concomitant]
     Indication: Injection site injury
     Route: 065
  6. GLYCOSAMINOGLYCANS [Concomitant]
     Active Substance: GLYCOSAMINOGLYCANS
     Indication: Injection site vesicles
     Route: 065

REACTIONS (6)
  - Metastases to bone [Not Recovered/Not Resolved]
  - Infusion related reaction [Recovered/Resolved]
  - Injection site vesicles [Recovered/Resolved]
  - Infusion site extravasation [Recovered/Resolved]
  - Injection site injury [Recovered/Resolved]
  - Erythema [Recovered/Resolved]

NARRATIVE: CASE EVENT DATE: 20250503
